FAERS Safety Report 24359230 (Version 1)
Quarter: 2024Q3

REPORT INFORMATION
  Report Type: Report from Study
  Country: US (occurrence: US)
  Receive Date: 20240924
  Receipt Date: 20240924
  Transmission Date: 20241017
  Serious: No
  Sender: Unknown Manufacturer
  Company Number: US-ROCHE-3536256

PATIENT
  Age: 68 Year
  Sex: Male

DRUGS (2)
  1. PRALSETINIB [Suspect]
     Active Substance: PRALSETINIB
     Indication: Lung neoplasm malignant
     Dosage: TAKE 3 CAPSULE(S) BY MOUTH EVERY DAY BEFORE BREAKFAST. TAKE ON AN EMPTY STOMACH. NO FOOD 2 HOURS BEF
  2. PRALSETINIB [Suspect]
     Active Substance: PRALSETINIB
     Indication: Metastases to bone

REACTIONS (2)
  - Product prescribing error [Unknown]
  - No adverse event [Unknown]
